FAERS Safety Report 18026650 (Version 2)
Quarter: 2020Q3

REPORT INFORMATION
  Report Type: Report from Study
  Country: US (occurrence: US)
  Receive Date: 20200715
  Receipt Date: 20200907
  Transmission Date: 20201103
  Serious: No
  Sender: FDA-Public Use
  Company Number: NVSC2020US196217

PATIENT
  Sex: Male

DRUGS (2)
  1. AFINITOR [Suspect]
     Active Substance: EVEROLIMUS
     Indication: RENAL CANCER
     Dosage: 5 MG, QD
     Route: 065
     Dates: start: 20200528
  2. LENVIMA [Suspect]
     Active Substance: LENVATINIB
     Indication: RENAL CANCER
     Dosage: 12 MG, QD
     Route: 048
     Dates: start: 20200528

REACTIONS (2)
  - Stomatitis [Recovered/Resolved]
  - Acne [Not Recovered/Not Resolved]
